FAERS Safety Report 11784769 (Version 2)
Quarter: 2015Q4

REPORT INFORMATION
  Report Type: Spontaneous
  Country: JP (occurrence: JP)
  Receive Date: 20151130
  Receipt Date: 20151216
  Transmission Date: 20160305
  Serious: Yes (Death, Other)
  Sender: FDA-Public Use
  Company Number: JP-CIPLA LTD.-2015JP08950

PATIENT

DRUGS (2)
  1. CARBOPLATIN. [Suspect]
     Active Substance: CARBOPLATIN
     Indication: NON-SMALL CELL LUNG CANCER STAGE IV
     Dosage: AUC 6, 567MG BODY ON DAY 1, 3-WEEK INTERVAL
     Route: 065
     Dates: start: 200712
  2. PACLITAXEL. [Suspect]
     Active Substance: PACLITAXEL
     Indication: NON-SMALL CELL LUNG CANCER STAGE IV
     Dosage: 200MG/M2, 288MG BODY ON DAY 1, 3-WEEK INTERVAL
     Route: 065
     Dates: start: 200712

REACTIONS (11)
  - Tunnel vision [Unknown]
  - Non-small cell lung cancer stage IV [Fatal]
  - Balance disorder [Unknown]
  - Dysarthria [Unknown]
  - Neoplasm progression [Fatal]
  - Metastasis [Fatal]
  - Altered state of consciousness [Unknown]
  - Drug ineffective [Unknown]
  - Metastases to central nervous system [Fatal]
  - Metastases to pancreas [Fatal]
  - Headache [Unknown]

NARRATIVE: CASE EVENT DATE: 200801
